FAERS Safety Report 9347258 (Version 1)
Quarter: 2013Q2

REPORT INFORMATION
  Report Type: Report from Study
  Country: CA (occurrence: CA)
  Receive Date: 20130613
  Receipt Date: 20130613
  Transmission Date: 20140414
  Serious: Yes (Other)
  Sender: FDA-Public Use
  Company Number: CA-ABBOTT-13P-028-1103129-00

PATIENT
  Sex: Male
  Weight: 72.64 kg

DRUGS (1)
  1. LUPRON DEPOT [Suspect]
     Indication: PROSTATE CANCER
     Dosage: LATEST DOSE: 03-JUN-2013
     Dates: start: 20110608

REACTIONS (4)
  - Neoplasm malignant [Not Recovered/Not Resolved]
  - Local swelling [Unknown]
  - Decreased appetite [Unknown]
  - Somnolence [Unknown]
